FAERS Safety Report 4636991-3 (Version None)
Quarter: 2005Q2

REPORT INFORMATION
  Report Type: 
  Country: None (occurrence: None)
  Receive Date: 20050414
  Receipt Date: 20050401
  Transmission Date: 20051028
  Serious: Yes (Hospitalization)
  Sender: FDA-Public Use
  Company Number: 2005BI004724

PATIENT
  Age: 47 Year
  Sex: Female

DRUGS (9)
  1. AVONEX [Suspect]
     Indication: MULTIPLE SCLEROSIS
     Dosage: 30 UG QW IM
     Route: 030
     Dates: start: 20011017, end: 20040802
  2. AVONEX [Suspect]
     Indication: MULTIPLE SCLEROSIS
     Dosage: 30 UG QW IM
     Route: 030
     Dates: start: 20040906
  3. LEVOXYL [Concomitant]
  4. PLAVIX [Concomitant]
  5. ASPIRIN [Concomitant]
  6. NITROGLYCERIN [Concomitant]
  7. INDERAL [Concomitant]
  8. ZOCOR [Concomitant]
  9. TENORMIN [Concomitant]

REACTIONS (5)
  - BLOOD CHOLESTEROL INCREASED [None]
  - HYPERTENSION [None]
  - MYOCARDIAL INFARCTION [None]
  - NICOTINE DEPENDENCE [None]
  - OBESITY [None]
